FAERS Safety Report 8805610 (Version 1)
Quarter: 2012Q4

REPORT INFORMATION
  Report Type: 
  Country: IT (occurrence: IT)
  Receive Date: 20120924
  Receipt Date: 20120924
  Transmission Date: 20130627
  Serious: Yes (Life-Threatening)
  Sender: FDA-Public Use
  Company Number: IT-MYLANLABS-2012S1019082

PATIENT
  Age: 65 Year
  Sex: Female

DRUGS (2)
  1. PACLITAXEL [Suspect]
     Indication: OVARIAN NEOPLASM
     Dosage: CYCLIC
     Route: 042
     Dates: start: 20120522, end: 20120904
  2. CARBOPLATIN [Suspect]
     Indication: OVARIAN NEOPLASM
     Dosage: CYCLIC
     Route: 042
     Dates: start: 20120522, end: 20120904

REACTIONS (3)
  - Bronchospasm [Recovered/Resolved]
  - Circulatory collapse [Recovered/Resolved]
  - Loss of consciousness [Recovered/Resolved]
